FAERS Safety Report 6253451-7 (Version None)
Quarter: 2009Q2

REPORT INFORMATION
  Report Type: 
  Country: None (occurrence: None)
  Receive Date: 20090626
  Receipt Date: 20090315
  Transmission Date: 20091009
  Serious: Yes (Life-Threatening, Hospitalization)
  Sender: FDA-Public Use
  Company Number: 622527

PATIENT
  Age: 67 Year
  Sex: Male
  Weight: 77.1 kg

DRUGS (1)
  1. XELODA [Suspect]
     Indication: COLON CANCER
     Dosage: 1650 MG 2 PER DAY ORAL
     Route: 048
     Dates: start: 20081228, end: 20090223

REACTIONS (1)
  - COLITIS [None]
